FAERS Safety Report 22888461 (Version 4)
Quarter: 2023Q4

REPORT INFORMATION
  Report Type: Spontaneous
  Country: DE (occurrence: DE)
  Receive Date: 20230831
  Receipt Date: 20231226
  Transmission Date: 20240109
  Serious: Yes (Death, Other)
  Sender: FDA-Public Use
  Company Number: DE-002147023-PHHY2019DE197871

PATIENT
  Sex: Female
  Weight: 74 kg

DRUGS (18)
  1. FULVESTRANT [Suspect]
     Active Substance: FULVESTRANT
     Indication: Breast cancer metastatic
     Dosage: 250 MG, BIW
     Route: 065
     Dates: start: 20190730
  2. RIBOCICLIB [Suspect]
     Active Substance: RIBOCICLIB
     Dosage: 400 MG, QD (21 DAYS INTAKE, 7 DAYS PAUSE)
     Route: 048
     Dates: start: 20190819
  3. RIBOCICLIB [Suspect]
     Active Substance: RIBOCICLIB
     Dosage: 400 MG, QD (21 DAYS INTAKE, 7 DAYS PAUSE)
     Route: 048
     Dates: start: 20200826
  4. RIBOCICLIB [Suspect]
     Active Substance: RIBOCICLIB
     Dosage: 400 MG, QD (21 DAYS INTAKE, 7 DAYS PAUSE)
     Route: 065
     Dates: start: 20190819
  5. RIBOCICLIB [Suspect]
     Active Substance: RIBOCICLIB
     Dosage: 400 MG, QD (21 DAYS INTAKE, 7 DAYS PAUSE)
     Route: 065
     Dates: start: 20230826
  6. RIBOCICLIB [Suspect]
     Active Substance: RIBOCICLIB
     Dosage: 400 MG, QD,  (21 DAYS INTAKE, 7 DAYS PAUSE)
     Route: 065
     Dates: start: 20190827
  7. RIBOCICLIB [Suspect]
     Active Substance: RIBOCICLIB
     Dosage: 600 MG, QD (21 DAYS INTAKE, 7 DAYS PAUSE)
     Route: 048
     Dates: start: 20190731, end: 20190805
  8. RIBOCICLIB [Suspect]
     Active Substance: RIBOCICLIB
     Dosage: 600 MG, QD (21 DAYS INTAKE, 7 DAYS PAUSE)
     Route: 048
     Dates: start: 20190813, end: 20190819
  9. RIBOCICLIB [Suspect]
     Active Substance: RIBOCICLIB
     Dosage: 600 MG, QD (21 DAYS INTAKE, 7 DAYS PAUSE)
     Route: 048
     Dates: start: 20190827, end: 20200401
  10. RIBOCICLIB [Suspect]
     Active Substance: RIBOCICLIB
     Dosage: 600 MG, QD (21 DAYS INTAKE, 7 DAYS PAUSE)
     Route: 048
     Dates: start: 20200408, end: 20200728
  11. RIBOCICLIB [Suspect]
     Active Substance: RIBOCICLIB
     Indication: Breast cancer metastatic
     Dosage: 600 MG, QD,  (21 DAYS INTAKE, 7 DAYS PAUSE)
     Route: 065
     Dates: start: 20190813, end: 20190819
  12. RIBOCICLIB [Suspect]
     Active Substance: RIBOCICLIB
     Dosage: 600 MG, QD,  (21 DAYS INTAKE, 7 DAYS PAUSE)
     Route: 065
     Dates: start: 20190731, end: 20190805
  13. RIBOCICLIB [Suspect]
     Active Substance: RIBOCICLIB
     Dosage: 600 MG, QD,  (21 DAYS INTAKE, 7 DAYS PAUSE)
     Route: 065
     Dates: start: 20190827, end: 20200401
  14. RIBOCICLIB [Suspect]
     Active Substance: RIBOCICLIB
     Dosage: 600 MG, QD,  (21 DAYS INTAKE, 7 DAYS PAUSE)
     Route: 065
     Dates: start: 20200408, end: 20200728
  15. ESCITALOPRAM [Concomitant]
     Active Substance: ESCITALOPRAM OXALATE
     Indication: Product used for unknown indication
     Dosage: 50 MG, QD
     Route: 065
     Dates: start: 2016
  16. LEVOTHYROXINE SODIUM [Concomitant]
     Active Substance: LEVOTHYROXINE SODIUM
     Indication: Thyroid disorder
     Dosage: 100 UG, QD
     Route: 065
  17. QUETIAPINE [Concomitant]
     Active Substance: QUETIAPINE
     Indication: Product used for unknown indication
     Dosage: UNK
     Route: 065
  18. QUETIAPINE [Concomitant]
     Active Substance: QUETIAPINE
     Dosage: UNK
     Route: 065

REACTIONS (21)
  - General physical health deterioration [Fatal]
  - Neoplasm malignant [Fatal]
  - Weight decreased [Not Recovered/Not Resolved]
  - Neutropenia [Recovered/Resolved]
  - General physical health deterioration [Not Recovered/Not Resolved]
  - Fall [Recovered/Resolved]
  - Asthenia [Recovered/Resolved]
  - Sleep disorder [Recovering/Resolving]
  - Platelet count decreased [Unknown]
  - Vomiting [Recovering/Resolving]
  - Decreased appetite [Recovered/Resolved]
  - Basophil count increased [Unknown]
  - Blister [Not Recovered/Not Resolved]
  - Tumour marker increased [Not Recovered/Not Resolved]
  - Full blood count abnormal [Recovered/Resolved]
  - Full blood count abnormal [Unknown]
  - Vomiting [Recovered/Resolved]
  - Monocyte count decreased [Unknown]
  - Fatigue [Not Recovered/Not Resolved]
  - Dry skin [Not Recovered/Not Resolved]
  - White blood cell count decreased [Unknown]

NARRATIVE: CASE EVENT DATE: 20190813
